FAERS Safety Report 14430914 (Version 1)
Quarter: 2018Q1

REPORT INFORMATION
  Report Type: Spontaneous
  Country: US (occurrence: US)
  Receive Date: 20180124
  Receipt Date: 20180124
  Transmission Date: 20180509
  Serious: No
  Sender: FDA-Public Use
  Company Number: US-AMGEN-USASP2018007586

PATIENT
  Age: 38 Year
  Sex: Female

DRUGS (3)
  1. ENBREL [Suspect]
     Active Substance: ETANERCEPT
     Indication: RHEUMATOID ARTHRITIS
     Dosage: 50 MG, QWK
     Route: 065
     Dates: start: 201707, end: 201712
  2. METHOTREXATE. [Concomitant]
     Active Substance: METHOTREXATE
     Dosage: UNK
  3. ENBREL [Suspect]
     Active Substance: ETANERCEPT
     Dosage: 50 MG, QWK
     Route: 065
     Dates: start: 201712

REACTIONS (6)
  - Accidental exposure to product [Unknown]
  - Injection site haemorrhage [Unknown]
  - Injection site vesicles [Unknown]
  - Drug dose omission [Unknown]
  - Wrong technique in product usage process [Unknown]
  - Injection site bruising [Unknown]

NARRATIVE: CASE EVENT DATE: 201712
